FAERS Safety Report 6208964-0 (Version None)
Quarter: 2009Q2

REPORT INFORMATION
  Report Type: 
  Country: None (occurrence: None)
  Receive Date: 20090529
  Receipt Date: 20090513
  Transmission Date: 20091009
  Serious: Yes (Death, Life-Threatening, Hospitalization)
  Sender: FDA-Public Use
  Company Number: DE-PFIZER INC-2009182185

PATIENT
  Age: 71 Year

DRUGS (19)
  1. BLINDED *PLACEBO [Suspect]
     Indication: ANTIFUNGAL TREATMENT
     Dosage: UNK
     Route: 042
     Dates: start: 20090131, end: 20090210
  2. BLINDED VORICONAZOLE [Suspect]
     Indication: ANTIFUNGAL TREATMENT
     Dosage: UNK
     Route: 042
     Dates: start: 20090131, end: 20090210
  3. BLINDED VORICONAZOLE [Suspect]
     Dosage: UNK
     Route: 042
     Dates: start: 20090131, end: 20090210
  4. VORICONAZOLE [Suspect]
     Indication: ANTIFUNGAL TREATMENT
     Dosage: 314 MG, 2X/DAY
     Route: 042
     Dates: start: 20090211, end: 20090220
  5. ALLOPURINOL [Concomitant]
     Dosage: UNK
     Route: 048
     Dates: start: 20090127, end: 20090320
  6. PANTOZOL [Concomitant]
     Dosage: UNK
     Route: 048
     Dates: start: 20090127, end: 20090302
  7. MERONEM [Concomitant]
     Dosage: UNK
     Route: 048
     Dates: start: 20090130, end: 20090320
  8. FUROSEMID [Concomitant]
     Dosage: UNK
     Route: 048
     Dates: start: 20090203, end: 20090211
  9. BEPANTHEN CREME [Concomitant]
     Dosage: UNK
     Dates: start: 20090127, end: 20090220
  10. FORTUM [Concomitant]
     Dosage: UNK
     Route: 048
     Dates: start: 20090212, end: 20090218
  11. TRAMADOL HCL [Concomitant]
     Dosage: UNK
     Route: 048
     Dates: start: 20090210, end: 20090217
  12. LACTULOSE [Concomitant]
     Dosage: UNK
     Route: 048
     Dates: start: 20090210, end: 20090216
  13. HALOPERIDOL [Concomitant]
     Dosage: UNK
     Route: 048
     Dates: start: 20090217, end: 20090302
  14. TAZOBAC [Concomitant]
     Dosage: UNK
     Route: 048
     Dates: start: 20090217, end: 20090302
  15. RANITIDINE HCL [Concomitant]
     Dosage: UNK
     Route: 048
     Dates: start: 20090217, end: 20090302
  16. KLACID [Concomitant]
     Dosage: UNK
     Route: 048
     Dates: start: 20090218, end: 20090302
  17. COTRIM DS [Concomitant]
     Dosage: UNK
     Route: 048
     Dates: start: 20090218, end: 20090302
  18. KALINOR [Concomitant]
     Dosage: UNK
     Route: 048
     Dates: end: 20090302
  19. VORICONAZOLE [Concomitant]
     Dosage: UNK
     Route: 042
     Dates: start: 20090221, end: 20090302

REACTIONS (1)
  - SEPSIS [None]
